FAERS Safety Report 8559651 (Version 2)
Quarter: 2012Q4

REPORT INFORMATION
  Report Type: 
  Country: BR (occurrence: BR)
  Receive Date: 20120514
  Receipt Date: 20121217
  Transmission Date: 20130627
  Serious: Yes (Hospitalization, Other)
  Sender: FDA-Public Use
  Company Number: BR-US-EMD SERONO, INC.-7105424

PATIENT
  Age: 24 None
  Sex: Female

DRUGS (6)
  1. REBIF [Suspect]
     Indication: RELAPSING-REMITTING MULTIPLE SCLEROSIS
     Dates: start: 20110803, end: 20120103
  2. REBIF [Suspect]
     Dates: start: 20120104
  3. REBIF [Suspect]
     Dates: start: 20120601, end: 20121010
  4. CORTICOSTEROID [Suspect]
     Indication: HYPOAESTHESIA
  5. YASMIN [Concomitant]
     Indication: PRODUCT USED FOR UNKNOWN INDICATION
  6. ADVIL [Concomitant]
     Indication: PRODUCT USED FOR UNKNOWN INDICATION

REACTIONS (9)
  - Hypoaesthesia [Not Recovered/Not Resolved]
  - Lung infection [Recovering/Resolving]
  - Conjunctivitis [Unknown]
  - White blood cell count decreased [Recovering/Resolving]
  - Central nervous system lesion [Unknown]
  - VIIth nerve paralysis [Recovered/Resolved]
  - Alopecia [Recovering/Resolving]
  - Viral infection [Unknown]
  - Drug dose omission [Unknown]
